FAERS Safety Report 4725100-8 (Version None)
Quarter: 2005Q3

REPORT INFORMATION
  Report Type: 
  Country: None (occurrence: None)
  Receive Date: 20050721
  Receipt Date: 20050713
  Transmission Date: 20060218
  Serious: Yes (Hospitalization, Disabling)
  Sender: FDA-Public Use
  Company Number: 215964

PATIENT
  Age: 39 Year
  Sex: Male
  Weight: 78 kg

DRUGS (15)
  1. XOLAIR [Suspect]
     Indication: ASTHMA
     Dosage: 375 MG, Q2W, SUBCUTANEOUS
     Route: 058
     Dates: start: 20040517, end: 20050701
  2. THEOPHYLLINE [Concomitant]
  3. SINGULAIR [Concomitant]
  4. ALBUTEROL (ALBUTEROL, ALBUTEROL SULFATE) [Concomitant]
  5. FLOVENT [Concomitant]
  6. SEREVENT [Concomitant]
  7. FLONASE [Concomitant]
  8. XOPENEX [Concomitant]
  9. CYCLOBENZAPRINE HYDROCHLORIDE [Concomitant]
  10. ULTRACET (ACETAMINOPHEN, TRAMADOL HYDROCHLORIDE) [Concomitant]
  11. VERAPAMIL [Concomitant]
  12. NEXIUM [Concomitant]
  13. LASIX [Concomitant]
  14. POTASSIUM (POTASSIUM NOS) [Concomitant]
  15. DIAZEPAM [Concomitant]

REACTIONS (2)
  - MENTAL DISORDER [None]
  - NEUROPATHY PERIPHERAL [None]
